FAERS Safety Report 25869604 (Version 1)
Quarter: 2025Q4

REPORT INFORMATION
  Report Type: Spontaneous
  Country: US (occurrence: US)
  Receive Date: 20251001
  Receipt Date: 20251001
  Transmission Date: 20260117
  Serious: No
  Sender: BAYER HEALTHCARE LLC
  Company Number: US-BAYER-2025A127479

PATIENT
  Age: 72 Year
  Sex: Female
  Weight: 64.4 kg

DRUGS (12)
  1. CLARITIN [Suspect]
     Active Substance: LORATADINE
     Indication: Seasonal allergy
     Dosage: UNK
     Route: 065
     Dates: start: 2025
  2. TYVASO [Concomitant]
     Active Substance: TREPROSTINIL
     Indication: Pulmonary arterial hypertension
     Dosage: 2 ?G (12 BREATHS), FOUR TIMES A DAY (QID) (TREPROSTINIL SODIUM,  CONCENTRATION OF 0.6 MG/ML)
     Route: 055
     Dates: start: 20250530
  3. DILTIAZEM HYDROCHLORIDE [Concomitant]
     Active Substance: DILTIAZEM HYDROCHLORIDE
  4. MELATONIN [Concomitant]
     Active Substance: MELATONIN
     Indication: Seasonal allergy
  5. MELATONIN [Concomitant]
     Active Substance: MELATONIN
     Indication: Nasal congestion
  6. MELATONIN [Concomitant]
     Active Substance: MELATONIN
     Indication: Rhinorrhoea
  7. BACTRIM DS [Concomitant]
     Active Substance: SULFAMETHOXAZOLE\TRIMETHOPRIM
  8. LOSARTAN POTASSIUM [Concomitant]
     Active Substance: LOSARTAN POTASSIUM
  9. CELLCEPT [Concomitant]
     Active Substance: MYCOPHENOLATE MOFETIL
  10. OXYGEN [Concomitant]
     Active Substance: OXYGEN
  11. ROSUVASTATIN CALCIUM [Concomitant]
     Active Substance: ROSUVASTATIN CALCIUM
  12. LEXAPRO [Concomitant]
     Active Substance: ESCITALOPRAM OXALATE

REACTIONS (1)
  - Drug ineffective [Unknown]

NARRATIVE: CASE EVENT DATE: 20250101
